FAERS Safety Report 17774378 (Version 1)
Quarter: 2020Q2

REPORT INFORMATION
  Report Type: Spontaneous
  Country: JP (occurrence: JP)
  Receive Date: 20200513
  Receipt Date: 20200513
  Transmission Date: 20200714
  Serious: Yes (Hospitalization)
  Sender: FDA-Public Use
  Company Number: NVSJ2020JP004853

PATIENT
  Age: 39 Year
  Sex: Female

DRUGS (1)
  1. CERTICAN [Suspect]
     Active Substance: EVEROLIMUS
     Indication: LUNG TRANSPLANT
     Dosage: 1.5 MG DAILY IN TWO DIVIDED DOSES
     Route: 048

REACTIONS (2)
  - Cholelithiasis [Unknown]
  - Cholecystitis acute [Unknown]
